FAERS Safety Report 4395026-0 (Version None)
Quarter: 2004Q3

REPORT INFORMATION
  Report Type: 
  Country: None (occurrence: None)
  Receive Date: 20040706
  Receipt Date: 20030331
  Transmission Date: 20050211
  Serious: No
  Sender: FDA-Public Use
  Company Number: WAES 0303USA03007

PATIENT
  Age: 65 Year
  Sex: Female
  Weight: 84.8226 kg

DRUGS (3)
  1. HYZAAR [Suspect]
     Indication: HYPERTENSION
     Dosage: 50-12.5 MG/DAILY/PO
     Route: 048
     Dates: start: 20030311, end: 20030331
  2. COZAAR [Concomitant]
  3. LEVOTHROID [Concomitant]

REACTIONS (14)
  - ASTHENIA [None]
  - DIZZINESS [None]
  - DYSPNOEA [None]
  - ERYTHEMA [None]
  - FEELING ABNORMAL [None]
  - HEART RATE DECREASED [None]
  - HYPOAESTHESIA [None]
  - MALAISE [None]
  - NAUSEA [None]
  - OEDEMA PERIPHERAL [None]
  - PAIN IN EXTREMITY [None]
  - PALPITATIONS [None]
  - RESPIRATION ABNORMAL [None]
  - VISUAL DISTURBANCE [None]
